FAERS Safety Report 18729638 (Version 1)
Quarter: 2021Q1

REPORT INFORMATION
  Report Type: Spontaneous
  Country: US (occurrence: US)
  Receive Date: 20210112
  Receipt Date: 20210112
  Transmission Date: 20210419
  Serious: No
  Sender: FDA-Public Use
  Company Number: US-ASTRAZENECA-2020SF74473

PATIENT
  Age: 34612 Day
  Sex: Female

DRUGS (1)
  1. SYMBICORT [Suspect]
     Active Substance: BUDESONIDE\FORMOTEROL FUMARATE DIHYDRATE
     Indication: DYSPNOEA
     Dosage: 80 UG
     Route: 055

REACTIONS (4)
  - Product dose omission issue [Unknown]
  - Back injury [Unknown]
  - Fall [Unknown]
  - Device malfunction [Unknown]

NARRATIVE: CASE EVENT DATE: 20201226
